FAERS Safety Report 6086091-3 (Version None)
Quarter: 2009Q1

REPORT INFORMATION
  Report Type: 
  Country: None (occurrence: None)
  Receive Date: 20090217
  Receipt Date: 20090217
  Transmission Date: 20090719
  Serious: No
  Sender: FDA-Public Use
  Company Number: None

PATIENT
  Age: 27 Year
  Sex: Male
  Weight: 86.637 kg

DRUGS (1)
  1. AUGMENTIN '875' [Suspect]
     Indication: NASOPHARYNGITIS
     Dosage: 1 PO
     Route: 048
     Dates: start: 20090212, end: 20090212

REACTIONS (3)
  - CHEST PAIN [None]
  - DYSPEPSIA [None]
  - GASTROINTESTINAL PAIN [None]
